FAERS Safety Report 8265886-1 (Version None)
Quarter: 2012Q2

REPORT INFORMATION
  Report Type: 
  Country: None (occurrence: None)
  Receive Date: 20120406
  Receipt Date: 20120329
  Transmission Date: 20120825
  Serious: Yes (Hospitalization)
  Sender: FDA-Public Use
  Company Number: FR-GLAXOSMITHKLINE-B0792156A

PATIENT
  Age: 62 Year
  Sex: Male

DRUGS (2)
  1. IMMUNOSUPPRESSIVE [Concomitant]
     Dates: start: 20060101
  2. VALACYCLOVIR HYDROCHLORIDE [Suspect]
     Indication: HERPES ZOSTER
     Route: 048
     Dates: start: 20120229, end: 20120301

REACTIONS (2)
  - PYREXIA [None]
  - CONFUSIONAL STATE [None]
